FAERS Safety Report 8082010-9 (Version None)
Quarter: 2012Q1

REPORT INFORMATION
  Report Type: 
  Country: None (occurrence: None)
  Receive Date: 20120130
  Receipt Date: 20120123
  Transmission Date: 20120608
  Serious: Yes (Other)
  Sender: FDA-Public Use
  Company Number: PHHY2012BR005958

PATIENT
  Age: 46 Year
  Sex: Female

DRUGS (3)
  1. AZATHIOPRINE [Suspect]
     Indication: MYASTHENIA GRAVIS
  2. PREDNISONE TAB [Suspect]
     Indication: MYASTHENIA GRAVIS
  3. PYRIDOSTIGMINE BROMIDE [Suspect]
     Indication: MYASTHENIA GRAVIS

REACTIONS (14)
  - BODY TEMPERATURE INCREASED [None]
  - PARESIS [None]
  - EYE MOVEMENT DISORDER [None]
  - THYMUS ENLARGEMENT [None]
  - NAUSEA [None]
  - KERNIG'S SIGN [None]
  - BRUDZINSKI'S SIGN [None]
  - HEADACHE [None]
  - EYELID PTOSIS [None]
  - MUSCULOSKELETAL STIFFNESS [None]
  - ASTHENIA [None]
  - VOMITING [None]
  - MENINGITIS CRYPTOCOCCAL [None]
  - DRUG INEFFECTIVE [None]
